FAERS Safety Report 8936966 (Version 1)
Quarter: 2012Q4

REPORT INFORMATION
  Report Type: 
  Country: NL (occurrence: NL)
  Receive Date: 20121130
  Receipt Date: 20121130
  Transmission Date: 20130627
  Serious: Yes (Hospitalization)
  Sender: FDA-Public Use
  Company Number: NL-AMGEN-NLDSP2012076442

PATIENT
  Age: 65 Year
  Sex: Female

DRUGS (7)
  1. NEULASTA [Suspect]
     Indication: PRODUCT USED FOR UNKNOWN INDICATION
     Dosage: 6 mg, UNK
     Dates: start: 20121112
  2. SELOKEEN                           /00376902/ [Concomitant]
     Dosage: UNK
  3. AMLODIPINE [Concomitant]
     Dosage: UNK
  4. LOSARTAN [Concomitant]
     Dosage: UNK
  5. FENTANYL [Concomitant]
     Dosage: UNK
  6. NEXIUM                             /01479302/ [Concomitant]
     Dosage: UNK
  7. CHEMOTHERAPEUTICS [Concomitant]
     Dosage: UNK

REACTIONS (5)
  - Pain [Unknown]
  - Constipation [Unknown]
  - Pyrexia [Unknown]
  - Gastritis [Unknown]
  - Inflammatory bowel disease [Unknown]
